FAERS Safety Report 10192419 (Version 2)
Quarter: 2014Q3

REPORT INFORMATION
  Report Type: Spontaneous
  Country: IT (occurrence: IT)
  Receive Date: 20140523
  Receipt Date: 20140730
  Transmission Date: 20150326
  Serious: Yes (Hospitalization)
  Sender: FDA-Public Use
  Company Number: IT-BRISTOL-MYERS SQUIBB COMPANY-20750840

PATIENT
  Age: 72 Year
  Sex: Male

DRUGS (7)
  1. LANOXIN [Concomitant]
     Active Substance: DIGOXIN
     Dosage: 1 DF=1 UNIT?0.0625 MG TABS
     Route: 048
  2. SEQUACOR [Concomitant]
     Active Substance: BISOPROLOL
     Dosage: 2.5 MG TABS
     Route: 048
  3. COUMADIN [Suspect]
     Active Substance: WARFARIN SODIUM
     Indication: ATRIAL FIBRILLATION
     Dosage: INTERRUPTED?24APR14
     Route: 048
     Dates: start: 20120401, end: 20140424
  4. AMIODAR [Concomitant]
     Active Substance: AMIODARONE
     Route: 048
  5. ANTRA [Concomitant]
     Active Substance: OMEPRAZOLE
     Route: 048
  6. PLAVIX [Interacting]
     Active Substance: CLOPIDOGREL BISULFATE
     Indication: STENT PLACEMENT
     Dosage: INTERRUPTED?24APR14
     Route: 048
     Dates: start: 20050401
  7. TRIATEC [Concomitant]
     Active Substance: RAMIPRIL
     Route: 048

REACTIONS (2)
  - Subcutaneous haematoma [Recovered/Resolved]
  - Drug interaction [Unknown]

NARRATIVE: CASE EVENT DATE: 20140425
